FAERS Safety Report 5088562-5 (Version None)
Quarter: 2006Q3

REPORT INFORMATION
  Report Type: 
  Country: None (occurrence: None)
  Receive Date: 20060801
  Receipt Date: 20060418
  Transmission Date: 20061208
  Serious: Yes (Hospitalization)
  Sender: FDA-Public Use
  Company Number: OMPQ-PR-0604S-0252

PATIENT
  Age: 83 Year
  Sex: Male

DRUGS (1)
  1. OMNIPAQUE 140 [Suspect]
     Indication: PULMONARY EMBOLISM
     Dosage: 125 ML, SINGLE DOSE, I.V.
     Route: 042
     Dates: start: 20060228, end: 20060228

REACTIONS (1)
  - ANAPHYLACTOID REACTION [None]
